FAERS Safety Report 21874198 (Version 6)
Quarter: 2023Q2

REPORT INFORMATION
  Report Type: Spontaneous
  Country: AU (occurrence: AU)
  Receive Date: 20230117
  Receipt Date: 20230523
  Transmission Date: 20230722
  Serious: Yes (Hospitalization, Other)
  Sender: FDA-Public Use
  Company Number: AU-MYLANLABS-2023M1004186

PATIENT
  Age: 44 Year
  Sex: Male

DRUGS (6)
  1. CLOZARIL [Suspect]
     Active Substance: CLOZAPINE
     Indication: Schizophrenia
     Dosage: 700 MILLIGRAM
     Route: 048
     Dates: start: 20050503
  2. CLOZARIL [Suspect]
     Active Substance: CLOZAPINE
     Dosage: 600 MILLIGRAM
     Route: 048
  3. CLOZARIL [Suspect]
     Active Substance: CLOZAPINE
     Dosage: 300 MILLIGRAM (NOCTE)
     Route: 048
     Dates: start: 20230114
  4. ARIPIPRAZOLE [Concomitant]
     Active Substance: ARIPIPRAZOLE
     Dosage: 15 MILLIGRAM, QD (MANE)
     Route: 065
  5. FUROSEMIDE [Concomitant]
     Active Substance: FUROSEMIDE
     Dosage: 40 MILLIGRAM, BID
     Route: 065
  6. NICOTINE [Concomitant]
     Active Substance: NICOTINE
     Dosage: UNK QD (DAILY)
     Route: 062

REACTIONS (31)
  - Cardiac failure [Unknown]
  - Dependence [Unknown]
  - Exercise tolerance decreased [Unknown]
  - Dyspnoea [Unknown]
  - Oxygen saturation decreased [Unknown]
  - Cardiomyopathy [Unknown]
  - Respiratory failure [Unknown]
  - Weight decreased [Unknown]
  - Memory impairment [Unknown]
  - Distractibility [Unknown]
  - Abulia [Unknown]
  - Blood chloride decreased [Not Recovered/Not Resolved]
  - Blood phosphorus increased [Recovered/Resolved]
  - Fibrin D dimer increased [Recovering/Resolving]
  - Alanine aminotransferase increased [Unknown]
  - PO2 increased [Not Recovered/Not Resolved]
  - Glycosylated haemoglobin increased [Not Recovered/Not Resolved]
  - Anion gap decreased [Not Recovered/Not Resolved]
  - Blood albumin decreased [Recovered/Resolved]
  - Blood bicarbonate increased [Recovered/Resolved]
  - Blood creatinine decreased [Unknown]
  - Blood calcium decreased [Recovering/Resolving]
  - Blood glucose increased [Not Recovered/Not Resolved]
  - C-reactive protein increased [Not Recovered/Not Resolved]
  - Lymphocyte count decreased [Recovered/Resolved]
  - Globulins increased [Unknown]
  - White blood cell count increased [Recovered/Resolved]
  - PCO2 increased [Not Recovered/Not Resolved]
  - N-terminal prohormone brain natriuretic peptide increased [Unknown]
  - Haematocrit increased [Not Recovered/Not Resolved]
  - Antipsychotic drug level decreased [Not Recovered/Not Resolved]

NARRATIVE: CASE EVENT DATE: 20200921
